FAERS Safety Report 10438825 (Version 2)
Quarter: 2014Q3

REPORT INFORMATION
  Report Type: Spontaneous
  Country: US (occurrence: US)
  Receive Date: 20140908
  Receipt Date: 20140908
  Transmission Date: 20150326
  Serious: No
  Sender: FDA-Public Use
  Company Number: US-BRISTOL-MYERS SQUIBB COMPANY-20593414

PATIENT
  Age: 27 Year
  Sex: Female
  Weight: 95.69 kg

DRUGS (1)
  1. ABILIFY [Suspect]
     Active Substance: ARIPIPRAZOLE
     Indication: BIPOLAR I DISORDER
     Dosage: 1 DF:CUTTING 2 MG TABLETS IN HALF TO EQUAL A DOSE OF APPROXIMATELY 0.75 MG EVERY MORNING

REACTIONS (3)
  - Drug ineffective [Unknown]
  - Dyskinesia [Unknown]
  - Wrong technique in drug usage process [Unknown]
